FAERS Safety Report 7148819-0 (Version None)
Quarter: 2010Q4

REPORT INFORMATION
  Report Type: 
  Country: None (occurrence: None)
  Receive Date: 20101209
  Receipt Date: 20101130
  Transmission Date: 20110411
  Serious: Yes (Hospitalization, Other)
  Sender: FDA-Public Use
  Company Number: PHHY2010US79154

PATIENT
  Sex: Female

DRUGS (3)
  1. VALTURNA [Suspect]
     Dosage: 300/380 MG, UNK
     Route: 048
     Dates: start: 20101111, end: 20101116
  2. DIOVAN [Concomitant]
     Dosage: 320 MG, UNK
     Route: 048
     Dates: end: 20101111
  3. AMLODIPINE [Concomitant]
     Dosage: UNK

REACTIONS (5)
  - DIZZINESS [None]
  - DRUG INTOLERANCE [None]
  - DYSPNOEA [None]
  - RESPIRATORY DISORDER [None]
  - SYNCOPE [None]
